FAERS Safety Report 7004598-9 (Version None)
Quarter: 2010Q3

REPORT INFORMATION
  Report Type: 
  Country: None (occurrence: None)
  Receive Date: 20100921
  Receipt Date: 20100219
  Transmission Date: 20110219
  Serious: Yes (Hospitalization)
  Sender: FDA-Public Use
  Company Number: GB-SANOFI-AVENTIS-2010SA010124

PATIENT
  Age: 64 Year
  Sex: Male
  Weight: 75 kg

DRUGS (12)
  1. AFLIBERCEPT [Suspect]
     Route: 042
     Dates: start: 20091026, end: 20091026
  2. AFLIBERCEPT [Suspect]
     Route: 042
     Dates: start: 20100209, end: 20100209
  3. OXALIPLATIN [Suspect]
     Route: 042
     Dates: start: 20091026, end: 20091026
  4. OXALIPLATIN [Suspect]
     Route: 042
     Dates: start: 20100209, end: 20100209
  5. FLUOROURACIL [Suspect]
     Route: 042
     Dates: start: 20100209, end: 20100209
  6. LEUCOVORIN CALCIUM [Suspect]
     Route: 042
     Dates: start: 20100209, end: 20100209
  7. UNKNOWDRUG [Concomitant]
  8. PARACETAMOL [Concomitant]
  9. NULYTELY [Concomitant]
  10. TRAMADOL [Concomitant]
  11. LANSOPRAZOLE [Concomitant]
  12. ZOPLICONE [Concomitant]

REACTIONS (1)
  - LARGE INTESTINE PERFORATION [None]
